FAERS Safety Report 16388276 (Version 1)
Quarter: 2019Q2

REPORT INFORMATION
  Report Type: Spontaneous
  Country: US (occurrence: US)
  Receive Date: 20190601
  Receipt Date: 20190601
  Transmission Date: 20190711
  Serious: Yes (Other)
  Sender: FDA-Public Use
  Company Number: None

PATIENT
  Age: 63 Year
  Sex: Male

DRUGS (1)
  1. REPATHA [Suspect]
     Active Substance: EVOLOCUMAB
     Indication: LOW DENSITY LIPOPROTEIN INCREASED
     Dosage: ?          OTHER FREQUENCY:2X MONTH;OTHER ROUTE:INJECTED ABDOMINAL?
     Dates: start: 20180915, end: 20181215

REACTIONS (7)
  - Eye pruritus [None]
  - Epistaxis [None]
  - Wheezing [None]
  - Pharyngeal haemorrhage [None]
  - Pruritus generalised [None]
  - Aspiration [None]
  - Asthma [None]

NARRATIVE: CASE EVENT DATE: 20181215
